FAERS Safety Report 7259180-5 (Version None)
Quarter: 2011Q1

REPORT INFORMATION
  Report Type: 
  Country: None (occurrence: None)
  Receive Date: 20110129
  Receipt Date: 20100618
  Transmission Date: 20110831
  Serious: No
  Sender: FDA-Public Use
  Company Number: US-ABBOTT-10P-163-0653668-00

PATIENT
  Sex: Male
  Weight: 60.836 kg

DRUGS (2)
  1. HUMIRA [Suspect]
     Route: 058
     Dates: end: 20100611
  2. HUMIRA [Suspect]
     Indication: PSORIASIS
     Route: 058
     Dates: start: 20100611

REACTIONS (5)
  - BLISTER [None]
  - PAIN IN EXTREMITY [None]
  - WOUND [None]
  - OEDEMA PERIPHERAL [None]
  - PSORIASIS [None]
